FAERS Safety Report 13693697 (Version 1)
Quarter: 2017Q2

REPORT INFORMATION
  Report Type: Spontaneous
  Country: US (occurrence: US)
  Receive Date: 20170627
  Receipt Date: 20170627
  Transmission Date: 20170830
  Serious: No
  Sender: FDA-Public Use
  Company Number: US-DSJP-DSU-2017-113599

PATIENT
  Age: 43 Year
  Sex: Male

DRUGS (2)
  1. WELCHOL [Suspect]
     Active Substance: COLESEVELAM HYDROCHLORIDE
     Indication: IRRITABLE BOWEL SYNDROME
     Dosage: 3-4 TABLETS OF 625 MG, QD
     Route: 048
     Dates: end: 201703
  2. PROBIOTIC                          /06395501/ [Concomitant]
     Active Substance: BIFIDOBACTERIUM ANIMALIS SUBSP. LACTIS
     Indication: IRRITABLE BOWEL SYNDROME
     Dosage: UNK

REACTIONS (4)
  - Anxiety [Unknown]
  - Weight decreased [Unknown]
  - Off label use [Recovered/Resolved]
  - Therapeutic response unexpected [Unknown]

NARRATIVE: CASE EVENT DATE: 2017
